FAERS Safety Report 9362010 (Version 1)
Quarter: 2013Q2

REPORT INFORMATION
  Report Type: Spontaneous
  Country: US (occurrence: US)
  Receive Date: 20130621
  Receipt Date: 20130621
  Transmission Date: 20140414
  Serious: No
  Sender: FDA-Public Use
  Company Number: US-PFIZER INC-2013182729

PATIENT
  Sex: 0

DRUGS (1)
  1. TYGACIL [Suspect]
     Dosage: UNK
     Route: 042

REACTIONS (2)
  - Nausea [Unknown]
  - Drug intolerance [Unknown]
